FAERS Safety Report 5663142-9 (Version None)
Quarter: 2008Q1

REPORT INFORMATION
  Report Type: 
  Country: None (occurrence: None)
  Receive Date: 20080313
  Receipt Date: 20080312
  Transmission Date: 20080703
  Serious: Yes (Other)
  Sender: FDA-Public Use
  Company Number: B0511994A

PATIENT
  Age: 86 Year
  Sex: Male

DRUGS (8)
  1. SEREVENT [Suspect]
     Indication: CHRONIC OBSTRUCTIVE PULMONARY DISEASE
     Dosage: 50MCG TWICE PER DAY
     Route: 055
     Dates: start: 20070926
  2. PULMICORT [Concomitant]
     Indication: CHRONIC OBSTRUCTIVE PULMONARY DISEASE
     Route: 055
  3. SPIRIVA [Concomitant]
     Indication: CHRONIC OBSTRUCTIVE PULMONARY DISEASE
     Route: 055
  4. ATELEC [Concomitant]
     Indication: HYPERTENSION
     Route: 048
  5. OPALMON [Concomitant]
     Indication: ARTERIOSCLEROSIS OBLITERANS
     Route: 048
  6. KIPRES [Concomitant]
     Indication: ASTHMA
     Route: 048
  7. LIPITOR [Concomitant]
     Route: 048
  8. ALOSENN [Concomitant]
     Indication: CONSTIPATION
     Route: 048

REACTIONS (1)
  - BLOOD PHOSPHORUS INCREASED [None]
